FAERS Safety Report 8019955-1 (Version None)
Quarter: 2012Q1

REPORT INFORMATION
  Report Type: 
  Country: None (occurrence: None)
  Receive Date: 20120103
  Receipt Date: 20111223
  Transmission Date: 20120608
  Serious: Yes (Death, Other)
  Sender: FDA-Public Use
  Company Number: PH-BAXTER-2011BH040528

PATIENT
  Age: 66 Year
  Sex: Female

DRUGS (1)
  1. DIANEAL [Suspect]
     Indication: PERITONEAL DIALYSIS
     Route: 033
     Dates: start: 20101119, end: 20111207

REACTIONS (5)
  - ELECTROLYTE IMBALANCE [None]
  - HYPERTENSION [None]
  - OEDEMA [None]
  - MYOCARDIAL INFARCTION [None]
  - PALPITATIONS [None]
